FAERS Safety Report 7439201-7 (Version None)
Quarter: 2011Q2

REPORT INFORMATION
  Report Type: 
  Country: None (occurrence: None)
  Receive Date: 20110427
  Receipt Date: 20110415
  Transmission Date: 20111010
  Serious: Yes (Other)
  Sender: FDA-Public Use
  Company Number: US-ELI_LILLY_AND_COMPANY-US201104005541

PATIENT
  Sex: Female

DRUGS (8)
  1. MULTI-VITAMIN [Concomitant]
     Dosage: UNK, QD
  2. VITAMIN A [Concomitant]
     Dosage: 50000 U, WEEKLY (1/W)
  3. FORTEO [Suspect]
     Indication: OSTEOPOROSIS
     Dosage: 20 UG, QD
     Dates: start: 20110308
  4. TUMS [Concomitant]
     Dosage: UNK
  5. METHADONE [Concomitant]
     Dosage: 5 MG, BID
  6. ADVAIR DISKUS 100/50 [Concomitant]
  7. PAXIL [Concomitant]
  8. PROTONIX [Concomitant]

REACTIONS (5)
  - RIB FRACTURE [None]
  - DYSPEPSIA [None]
  - NAUSEA [None]
  - RESPIRATORY FAILURE [None]
  - PAIN [None]
